FAERS Safety Report 19741319 (Version 1)
Quarter: 2021Q3

REPORT INFORMATION
  Report Type: Spontaneous
  Country: JP (occurrence: JP)
  Receive Date: 20210824
  Receipt Date: 20210824
  Transmission Date: 20211014
  Serious: Yes (Other)
  Sender: FDA-Public Use
  Company Number: JP-PFIZER INC-202101023871

PATIENT

DRUGS (2)
  1. PREMARIN [Suspect]
     Active Substance: ESTROGENS, CONJUGATED
     Dosage: UNKNOWN DOSE, FOR ONE WEEK, THEN FROM DAY 8 TO DAY 21
     Route: 048
  2. PROVERA [Suspect]
     Active Substance: MEDROXYPROGESTERONE ACETATE
     Dosage: UNKNOWN DOSE, FROM DAY 8 TO DAY 21
     Route: 048

REACTIONS (3)
  - Intentional product misuse [Unknown]
  - Back pain [Unknown]
  - Haemorrhage [Unknown]
